FAERS Safety Report 8241708-X (Version None)
Quarter: 2012Q1

REPORT INFORMATION
  Report Type: 
  Country: None (occurrence: None)
  Receive Date: 20120328
  Receipt Date: 20120326
  Transmission Date: 20120608
  Serious: Yes (Other)
  Sender: FDA-Public Use
  Company Number: US-GILEAD-2012-0049542

PATIENT
  Sex: Female

DRUGS (3)
  1. VITAMIN D [Concomitant]
     Indication: VITAMIN D DEFICIENCY
     Dosage: UNK
     Dates: start: 20111004
  2. FUROSEMIDE [Concomitant]
     Indication: PRODUCT USED FOR UNKNOWN INDICATION
  3. COMPLERA [Suspect]
     Indication: HIV INFECTION
     Dosage: UNK UNKNOWN, UNK
     Route: 048
     Dates: start: 20111006, end: 20120112

REACTIONS (2)
  - PROTEINURIA [None]
  - NEPHROTIC SYNDROME [None]
